FAERS Safety Report 5773804-0 (Version None)
Quarter: 2008Q2

REPORT INFORMATION
  Report Type: 
  Country: None (occurrence: None)
  Receive Date: 20080601
  Receipt Date: 20080225
  Transmission Date: 20081010
  Serious: No
  Sender: FDA-Public Use
  Company Number: US200802005888

PATIENT
  Age: 59 Year
  Sex: Female

DRUGS (12)
  1. BYETTA [Suspect]
     Indication: TYPE 2 DIABETES MELLITUS
     Dosage: 5 UG, 2/D, SUBCUTANEOUS
     Route: 058
     Dates: start: 20080223
  2. EXENATIDE 5MCG PEN, DISPOSABLE DEVICE (EXENATIDE PEN (5MCG)) PEN,DISPO [Concomitant]
  3. GLUCOPHAGE/USA/ (METFORMIN HYDROCHLORIDE) [Concomitant]
  4. LANTUS [Concomitant]
  5. LASIX /USA/ (FUROSEMIDE) [Concomitant]
  6. POTASSIUM (POTASSIUM) [Concomitant]
  7. ANTIHYPERTENSIVES [Concomitant]
  8. LOTREL [Concomitant]
  9. TOPROL-XL [Concomitant]
  10. CLONIDINE [Concomitant]
  11. PLAVIX [Concomitant]
  12. ASPIRIN /USA/ (ACETYLIC ACID) [Concomitant]

REACTIONS (2)
  - HYPERTENSION [None]
  - STOMACH DISCOMFORT [None]
